FAERS Safety Report 19160916 (Version 2)
Quarter: 2021Q2

REPORT INFORMATION
  Report Type: Spontaneous
  Country: CA (occurrence: CA)
  Receive Date: 20210421
  Receipt Date: 20210506
  Transmission Date: 20210717
  Serious: Yes (Hospitalization, Other)
  Sender: FDA-Public Use
  Company Number: CA-AUROBINDO-AUR-APL-2021-015935

PATIENT
  Age: 84 Year
  Sex: Female
  Weight: 42 kg

DRUGS (2)
  1. AURO?ARIPIPRAZOLE TABLETS [Suspect]
     Active Substance: ARIPIPRAZOLE
     Indication: GENERALISED ANXIETY DISORDER
  2. AURO?ARIPIPRAZOLE TABLETS [Suspect]
     Active Substance: ARIPIPRAZOLE
     Indication: PANIC DISORDER
     Dosage: 2 MILLIGRAM, ONCE A DAY
     Route: 048

REACTIONS (3)
  - Parkinsonism [Recovered/Resolved]
  - Psychomotor disadaptation syndrome [Recovered/Resolved]
  - Balance disorder [Recovered/Resolved]
